FAERS Safety Report 8440008-2 (Version None)
Quarter: 2012Q2

REPORT INFORMATION
  Report Type: 
  Country: None (occurrence: None)
  Receive Date: 20120615
  Receipt Date: 20120611
  Transmission Date: 20120825
  Serious: Yes (Hospitalization, Other)
  Sender: FDA-Public Use
  Company Number: US-TEVA-342798USA

PATIENT
  Age: 28 Year
  Sex: Female

DRUGS (4)
  1. PREDNISONE TAB [Concomitant]
     Route: 065
  2. FUROSEMIDE [Concomitant]
     Route: 065
  3. SPIRONOLACTONE [Concomitant]
     Route: 065
  4. LEFLUNOMIDE [Suspect]
     Route: 065

REACTIONS (1)
  - PULMONARY HYPERTENSION [None]
